FAERS Safety Report 17796082 (Version 1)
Quarter: 2020Q2

REPORT INFORMATION
  Report Type: Report from Study
  Country: US (occurrence: US)
  Receive Date: 20200517
  Receipt Date: 20200517
  Transmission Date: 20200714
  Serious: Yes (Other)
  Sender: FDA-Public Use
  Company Number: US-TEVA-2020-US-1236833

PATIENT
  Age: 73 Year
  Sex: Male

DRUGS (3)
  1. RITUXIMAB. [Suspect]
     Active Substance: RITUXIMAB
     Indication: PEMPHIGOID
     Dosage: RECEIVED 1CYCLE OF RITUXIMAB 1000MG ON DAYS 1 AND 15 (RHEUMATOID ARTHRITIS DOSE)
     Route: 065
  2. DAPSONE. [Suspect]
     Active Substance: DAPSONE
     Indication: PEMPHIGOID
     Route: 065
  3. PREDNISONE. [Suspect]
     Active Substance: PREDNISONE
     Indication: PEMPHIGOID
     Dosage: 2.5 MILLIGRAM DAILY;
     Route: 065

REACTIONS (2)
  - Anaemia [Unknown]
  - Pneumonia [Unknown]
